FAERS Safety Report 4337970-6 (Version None)
Quarter: 2004Q2

REPORT INFORMATION
  Report Type: 
  Country: None (occurrence: None)
  Receive Date: 20040413
  Receipt Date: 20040405
  Transmission Date: 20050107
  Serious: Yes (Disabling)
  Sender: FDA-Public Use
  Company Number: US-MERCK-0404USA00477

PATIENT
  Age: 68 Year
  Sex: Female

DRUGS (4)
  1. ZYRTEC [Concomitant]
     Route: 065
  2. ADVAIR DISKUS 100/50 [Concomitant]
     Route: 065
  3. SINGULAIR [Suspect]
     Indication: HYPERSENSITIVITY
     Route: 048
     Dates: start: 20030101, end: 20040405
  4. BACTRIM [Concomitant]
     Route: 065

REACTIONS (6)
  - CHILLS [None]
  - EAR PAIN [None]
  - MIDDLE EAR EFFUSION [None]
  - PAIN [None]
  - PHARYNGOLARYNGEAL PAIN [None]
  - PYREXIA [None]
